FAERS Safety Report 6450433-7 (Version None)
Quarter: 2009Q4

REPORT INFORMATION
  Report Type: 
  Country: None (occurrence: None)
  Receive Date: 20091123
  Receipt Date: 20091118
  Transmission Date: 20100525
  Serious: Yes (Death, Other)
  Sender: FDA-Public Use
  Company Number: JP-BAYER-200912977BYL

PATIENT
  Age: 72 Year
  Sex: Male
  Weight: 59 kg

DRUGS (8)
  1. NEXAVAR [Suspect]
     Indication: HEPATIC NEOPLASM MALIGNANT
     Dosage: UNIT DOSE: 200 MG
     Route: 048
     Dates: start: 20090724, end: 20090817
  2. AMARYL [Concomitant]
     Dosage: SINCE BEFORE ADMINISTRATION
     Route: 048
  3. LASIX [Concomitant]
     Dosage: SINCE BEFORE ADMINISTRATION
     Route: 048
  4. ALDACTONE [Concomitant]
     Dosage: SINCE BEFORE ADMINISTRATION
     Route: 048
  5. GASTER [Concomitant]
     Indication: GASTRITIS PROPHYLAXIS
     Dosage: SINCE BEFORE ADMINISTRATION
     Route: 048
     Dates: end: 20090805
  6. GASMOTIN [Concomitant]
     Indication: PROPHYLAXIS OF NAUSEA AND VOMITING
     Route: 048
     Dates: start: 20090728
  7. OMEPRAL [Concomitant]
     Indication: HAEMORRHAGE PROPHYLAXIS
     Route: 048
     Dates: start: 20090806
  8. LIVACT [Concomitant]
     Indication: ASCITES
     Route: 048
     Dates: start: 20090812

REACTIONS (4)
  - HEPATIC FAILURE [None]
  - HEPATIC FUNCTION ABNORMAL [None]
  - HYPERTENSION [None]
  - STOMATITIS [None]
